FAERS Safety Report 6824072-X (Version None)
Quarter: 2010Q3

REPORT INFORMATION
  Report Type: 
  Country: None (occurrence: None)
  Receive Date: 20100708
  Receipt Date: 20061004
  Transmission Date: 20110219
  Serious: No
  Sender: FDA-Public Use
  Company Number: US-PFIZER INC-2006123089

PATIENT
  Sex: Male
  Weight: 102.97 kg

DRUGS (7)
  1. CHANTIX [Suspect]
     Indication: SMOKING CESSATION THERAPY
     Dates: start: 20060901, end: 20061004
  2. WARFARIN SODIUM [Concomitant]
  3. ZOCOR [Concomitant]
  4. ACETYLSALICYLIC ACID [Concomitant]
  5. DEPAKOTE [Concomitant]
  6. TOPROL-XL [Concomitant]
  7. ANTI-ASTHMATICS [Concomitant]

REACTIONS (5)
  - ABDOMINAL DISCOMFORT [None]
  - ABDOMINAL DISTENSION [None]
  - FLATULENCE [None]
  - UNEVALUABLE EVENT [None]
  - WEIGHT INCREASED [None]
